FAERS Safety Report 5310320-4 (Version None)
Quarter: 2007Q2

REPORT INFORMATION
  Report Type: 
  Country: None (occurrence: None)
  Receive Date: 20070427
  Receipt Date: 20070419
  Transmission Date: 20071010
  Serious: Yes (Death, Hospitalization)
  Sender: FDA-Public Use
  Company Number: GBWYE357504APR07

PATIENT
  Sex: Female
  Weight: 53.5 kg

DRUGS (12)
  1. ENBREL [Suspect]
     Indication: RHEUMATOID ARTHRITIS
     Route: 058
     Dates: start: 20030901, end: 20070301
  2. PREDNISOLONE [Concomitant]
     Indication: RHEUMATOID ARTHRITIS
     Dosage: 5 MG DAILY
     Route: 048
     Dates: end: 20070326
  3. DICLOFENAC SODIUM [Concomitant]
     Indication: RHEUMATOID ARTHRITIS
     Route: 048
     Dates: end: 20070326
  4. ALENDRONATE SODIUM [Concomitant]
     Indication: OSTEOPOROSIS PROPHYLAXIS
     Dosage: 70 MG WEEKLY
     Route: 048
     Dates: end: 20070301
  5. FERROUS SULFATE TAB [Concomitant]
     Dosage: UNKNOWN
  6. TRAMADOL HCL [Concomitant]
     Indication: ANALGESIC EFFECT
     Dosage: 50 MG
     Route: 048
  7. CO-DYDRAMOL [Concomitant]
     Indication: ANALGESIC EFFECT
     Dosage: 30/500MG FREQUENCY UNKNOWN
     Route: 048
  8. ATENOLOL [Concomitant]
     Indication: HYPERTENSION
     Route: 048
  9. PANTOPRAZOLE [Concomitant]
     Route: 048
  10. DIAZEPAM [Concomitant]
     Route: 048
  11. METHOTREXATE [Concomitant]
     Indication: RHEUMATOID ARTHRITIS
     Dosage: 10 MG WEEKLY
     Route: 048
     Dates: end: 20070301
  12. CALCICHEW [Concomitant]
     Indication: OSTEOPOROSIS PROPHYLAXIS
     Route: 048
     Dates: end: 20070301

REACTIONS (4)
  - MULTI-ORGAN FAILURE [None]
  - NEUTROPENIC SEPSIS [None]
  - PNEUMONIA [None]
  - RENAL FAILURE [None]
